FAERS Safety Report 25488650 (Version 2)
Quarter: 2025Q3

REPORT INFORMATION
  Report Type: Spontaneous
  Country: US (occurrence: US)
  Receive Date: 20250627
  Receipt Date: 20250705
  Transmission Date: 20251020
  Serious: Yes (Hospitalization, Other)
  Sender: MERCK SHARP & DOHME LLC
  Company Number: US-009507513-2300492

PATIENT
  Age: 69 Year
  Sex: Female

DRUGS (11)
  1. JANUVIA [Suspect]
     Active Substance: SITAGLIPTIN PHOSPHATE
     Indication: Type 2 diabetes mellitus
     Dosage: 100 MG / DAILY
     Route: 048
     Dates: start: 20241009
  2. ELIQUIS [Concomitant]
     Active Substance: APIXABAN
  3. OZEMPIC [Concomitant]
     Active Substance: SEMAGLUTIDE
     Indication: Type 2 diabetes mellitus
     Route: 058
     Dates: start: 20240212
  4. LEVOTHYROXINE [Concomitant]
     Active Substance: LEVOTHYROXINE
     Dosage: DOSAGE: 50 MCG
     Route: 048
     Dates: start: 20241009
  5. ATORVASTATIN [Concomitant]
     Active Substance: ATORVASTATIN
     Route: 048
     Dates: start: 20241009
  6. PANTOPRAZOLE [Concomitant]
     Active Substance: PANTOPRAZOLE
     Route: 048
     Dates: start: 20241009
  7. METOPROLOL [Concomitant]
     Active Substance: METOPROLOL
  8. ALLOPURINOL [Concomitant]
     Active Substance: ALLOPURINOL
  9. FARXIGA [Concomitant]
     Active Substance: DAPAGLIFLOZIN PROPANEDIOL
     Indication: Type 2 diabetes mellitus
  10. BUPROPION [Concomitant]
     Active Substance: BUPROPION
     Indication: Depression
     Route: 048
  11. WELLBUTRIN [Concomitant]
     Active Substance: BUPROPION HYDROCHLORIDE

REACTIONS (12)
  - Pulmonary embolism [Unknown]
  - Mastectomy [Unknown]
  - Impaired healing [Recovered/Resolved]
  - Memory impairment [Unknown]
  - Hypertensive heart disease [Unknown]
  - Obstructive sleep apnoea syndrome [Unknown]
  - Mixed incontinence [Unknown]
  - Gastrooesophageal reflux disease [Unknown]
  - Major depression [Unknown]
  - Breast reconstruction [Unknown]
  - Metabolic dysfunction-associated steatohepatitis [Unknown]
  - Lung carcinoma cell type unspecified recurrent [Unknown]

NARRATIVE: CASE EVENT DATE: 20241201
